FAERS Safety Report 16096477 (Version 1)
Quarter: 2019Q1

REPORT INFORMATION
  Report Type: Report from Study
  Country: US (occurrence: US)
  Receive Date: 20190320
  Receipt Date: 20190320
  Transmission Date: 20190418
  Serious: Yes (Other)
  Sender: FDA-Public Use
  Company Number: US-MYLANLABS-2019M1025770

PATIENT
  Age: 27 Year

DRUGS (4)
  1. ENOXAPARIN [Concomitant]
     Active Substance: ENOXAPARIN
     Indication: THROMBOSIS PROPHYLAXIS
     Route: 065
  2. PEGASPARGASE [Suspect]
     Active Substance: PEGASPARGASE
     Indication: T-CELL TYPE ACUTE LEUKAEMIA
     Route: 065
  3. PREDNISONE. [Suspect]
     Active Substance: PREDNISONE
     Indication: T-CELL TYPE ACUTE LEUKAEMIA
     Route: 065
  4. ANTITHROMBIN III [Concomitant]
     Active Substance: ANTITHROMBIN III HUMAN
     Indication: ACUTE LYMPHOCYTIC LEUKAEMIA
     Route: 065

REACTIONS (2)
  - Embolism venous [Unknown]
  - Nervous system disorder [Unknown]
